FAERS Safety Report 13219372 (Version 1)
Quarter: 2017Q1

REPORT INFORMATION
  Report Type: Other
  Country: US (occurrence: US)
  Receive Date: 20170210
  Receipt Date: 20170210
  Transmission Date: 20170428
  Serious: No
  Sender: FDA-Public Use
  Company Number: US-ACORDA-ACO_127467_2016

PATIENT
  Sex: Female

DRUGS (1)
  1. AMPYRA [Suspect]
     Active Substance: DALFAMPRIDINE
     Indication: PRODUCT USED FOR UNKNOWN INDICATION
     Dosage: 10 MG, Q 12 HRS
     Route: 065
     Dates: start: 20160303

REACTIONS (8)
  - Dyschromatopsia [Unknown]
  - Memory impairment [Unknown]
  - Diarrhoea [Unknown]
  - Cardiac disorder [Unknown]
  - Abdominal pain [Unknown]
  - Flushing [Unknown]
  - Nausea [Unknown]
  - Pruritus [Unknown]
